FAERS Safety Report 25214257 (Version 1)
Quarter: 2025Q2

REPORT INFORMATION
  Report Type: Spontaneous
  Country: US (occurrence: None)
  Receive Date: 20250417
  Receipt Date: 20250417
  Transmission Date: 20250716
  Serious: Yes (Disabling)
  Sender: FDA-CTU
  Company Number: None

PATIENT
  Age: 53 Year
  Sex: Female
  Weight: 46.27 kg

DRUGS (2)
  1. BUDESONIDE [Suspect]
     Active Substance: BUDESONIDE
     Indication: Colitis microscopic
     Dosage: FREQUENCY : DAILY;?
     Dates: start: 202206
  2. BUDESONIDE [Suspect]
     Active Substance: BUDESONIDE
     Indication: Nausea
     Dates: start: 201012

REACTIONS (6)
  - Small fibre neuropathy [None]
  - Sweat gland disorder [None]
  - Diplopia [None]
  - Dizziness [None]
  - Cognitive disorder [None]
  - Toxicity to various agents [None]

NARRATIVE: CASE EVENT DATE: 20220601
